FAERS Safety Report 6828935-0 (Version None)
Quarter: 2010Q3

REPORT INFORMATION
  Report Type: 
  Country: None (occurrence: None)
  Receive Date: 20100709
  Receipt Date: 20070222
  Transmission Date: 20110219
  Serious: No
  Sender: FDA-Public Use
  Company Number: US-PFIZER INC-2007014933

PATIENT
  Sex: Male
  Weight: 97.52 kg

DRUGS (4)
  1. CHANTIX [Suspect]
     Indication: SMOKING CESSATION THERAPY
     Dates: start: 20070201
  2. PREVACID [Concomitant]
  3. ZESTRIL [Concomitant]
  4. CRESTOR [Concomitant]

REACTIONS (1)
  - SLEEP DISORDER [None]
